FAERS Safety Report 7444602-7 (Version None)
Quarter: 2011Q2

REPORT INFORMATION
  Report Type: 
  Country: None (occurrence: None)
  Receive Date: 20110426
  Receipt Date: 20110426
  Transmission Date: 20111010
  Serious: No
  Sender: FDA-Public Use
  Company Number: None

PATIENT
  Age: 65 Year
  Sex: Female
  Weight: 54.4316 kg

DRUGS (1)
  1. DRUG - MARIJUANA [Suspect]
     Indication: NEOPLASM MALIGNANT
     Dosage: 1-3 CIGARETTES SELDOM - PM
     Dates: start: 20110416

REACTIONS (1)
  - INTENTIONAL DRUG MISUSE [None]
